FAERS Safety Report 10205795 (Version 6)
Quarter: 2015Q2

REPORT INFORMATION
  Report Type: Report from Study
  Country: BE (occurrence: BE)
  Receive Date: 20140530
  Receipt Date: 20150423
  Transmission Date: 20150821
  Serious: Yes (Death, Hospitalization)
  Sender: FDA-Public Use
  Company Number: BE-BIOGENIDEC-2014BI049887

PATIENT
  Age: 80 Year
  Sex: Female

DRUGS (2)
  1. AVONEX [Suspect]
     Active Substance: INTERFERON BETA-1A
     Indication: MULTIPLE SCLEROSIS
     Route: 030
     Dates: start: 200010, end: 20140515
  2. AVONEX [Suspect]
     Active Substance: INTERFERON BETA-1A
     Indication: MULTIPLE SCLEROSIS
     Route: 030
     Dates: start: 19980101

REACTIONS (2)
  - Post procedural haemorrhage [Fatal]
  - Glioblastoma [Unknown]

NARRATIVE: CASE EVENT DATE: 20140415
